FAERS Safety Report 7358289-5 (Version None)
Quarter: 2011Q1

REPORT INFORMATION
  Report Type: 
  Country: None (occurrence: None)
  Receive Date: 20110317
  Receipt Date: 20110304
  Transmission Date: 20110831
  Serious: Yes (Death, Hospitalization)
  Sender: FDA-Public Use
  Company Number: DE-ROCHE-765247

PATIENT
  Sex: Male
  Weight: 95 kg

DRUGS (8)
  1. BONDRONAT [Concomitant]
     Route: 042
     Dates: start: 20110222
  2. DEXAMETHASONE [Concomitant]
     Route: 042
     Dates: start: 20110222
  3. RANITIC [Concomitant]
     Route: 042
     Dates: start: 20110222
  4. TAXOL [Suspect]
     Indication: METASTATIC BRONCHIAL CARCINOMA
     Route: 042
     Dates: start: 20110222
  5. NAVOBAN [Concomitant]
     Route: 042
     Dates: start: 20110222, end: 20110227
  6. BEVACIZUMAB [Suspect]
     Indication: METASTATIC BRONCHIAL CARCINOMA
     Route: 042
     Dates: start: 20110222
  7. CARBOPLATIN [Suspect]
     Indication: METASTATIC BRONCHIAL CARCINOMA
     Route: 042
     Dates: start: 20110222
  8. TAVEGIL [Concomitant]
     Route: 042
     Dates: start: 20110222

REACTIONS (4)
  - PNEUMONIA [None]
  - THROMBOCYTOPENIA [None]
  - ANAEMIA [None]
  - LEUKOPENIA [None]
